FAERS Safety Report 7510257-6 (Version None)
Quarter: 2011Q2

REPORT INFORMATION
  Report Type: 
  Country: None (occurrence: None)
  Receive Date: 20110527
  Receipt Date: 20110517
  Transmission Date: 20111010
  Serious: Yes (Hospitalization)
  Sender: FDA-Public Use
  Company Number: JP-NOVOPROD-328966

PATIENT
  Age: 64 Year
  Sex: Male
  Weight: 72 kg

DRUGS (9)
  1. NOVORAPID CHU PENFILL [Suspect]
     Dosage: 30 U, QD (6-6-9), AT DINNER TIME
     Route: 058
     Dates: start: 20090326
  2. VICTOZA [Concomitant]
     Dosage: 0.6 MG, UNK
     Route: 058
     Dates: start: 20110323, end: 20110501
  3. NOVORAPID CHU PENFILL [Suspect]
     Indication: TYPE 2 DIABETES MELLITUS
     Dosage: 12 U(4-4-4), QD
     Route: 058
     Dates: start: 20090319
  4. NOVORAPID CHU PENFILL [Suspect]
     Dosage: 12 U QD (4-4-4)
     Route: 058
     Dates: start: 20110501
  5. LEVEMIR [Concomitant]
     Indication: TYPE 2 DIABETES MELLITUS
     Dosage: 5 UNK, UNK
     Route: 065
     Dates: start: 20090406
  6. NOVORAPID CHU PENFILL [Suspect]
     Dosage: 23 U QD (10-7-6)
     Route: 058
     Dates: start: 20090528, end: 20110315
  7. LEVEMIR [Concomitant]
     Dosage: UNK
     Dates: start: 20090625
  8. VICTOZA [Concomitant]
     Indication: TYPE 2 DIABETES MELLITUS
     Dosage: 0.3 MG, QD IN THE MORNING MONOTHERAPY
     Route: 058
     Dates: start: 20110315
  9. LEVEMIR [Concomitant]
     Dosage: 5 UNK, UNK
     Dates: start: 20090528

REACTIONS (2)
  - DIABETIC RETINOPATHY [None]
  - RETINAL EXUDATES [None]
